FAERS Safety Report 4914760-4 (Version None)
Quarter: 2006Q1

REPORT INFORMATION
  Report Type: 
  Country: None (occurrence: None)
  Receive Date: 20060216
  Receipt Date: 20051117
  Transmission Date: 20060701
  Serious: Yes (Hospitalization)
  Sender: FDA-Public Use
  Company Number: US-MERCK-0511USA03147

PATIENT
  Age: 73 Year
  Sex: Female
  Weight: 83 kg

DRUGS (3)
  1. VIOXX [Suspect]
     Indication: ARTHRITIS
     Route: 048
     Dates: start: 20020501, end: 20030701
  2. MEVACOR [Concomitant]
     Indication: BLOOD CHOLESTEROL INCREASED
     Route: 048
     Dates: start: 19980301, end: 20050501
  3. HUMULIN [Concomitant]
     Indication: DIABETES MELLITUS
     Route: 065

REACTIONS (6)
  - ABDOMINAL DISCOMFORT [None]
  - ABDOMINAL DISTENSION [None]
  - ABDOMINAL PAIN UPPER [None]
  - ARTERIOSCLEROSIS [None]
  - CARDIAC FAILURE CONGESTIVE [None]
  - MYOCARDIAL INFARCTION [None]
